FAERS Safety Report 6760616-4 (Version None)
Quarter: 2010Q2

REPORT INFORMATION
  Report Type: 
  Country: None (occurrence: None)
  Receive Date: 20100608
  Receipt Date: 20100601
  Transmission Date: 20101027
  Serious: Yes (Other)
  Sender: FDA-Public Use
  Company Number: US-PFIZER INC-2010069492

PATIENT
  Sex: Male

DRUGS (2)
  1. CAMPTOSAR [Suspect]
     Dosage: UNK
  2. ATROPINE [Suspect]
     Dosage: UNK

REACTIONS (2)
  - PAINFUL ERECTION [None]
  - PRIAPISM [None]
